FAERS Safety Report 8077157-7 (Version None)
Quarter: 2012Q1

REPORT INFORMATION
  Report Type: 
  Country: None (occurrence: None)
  Receive Date: 20120126
  Receipt Date: 20120126
  Transmission Date: 20120608
  Serious: No
  Sender: FDA-Public Use
  Company Number: None

PATIENT

DRUGS (1)
  1. ATIVAN [Suspect]

REACTIONS (3)
  - MEDICATION ERROR [None]
  - SOMNOLENCE [None]
  - INCORRECT DOSE ADMINISTERED [None]
